FAERS Safety Report 8095398-X (Version None)
Quarter: 2012Q1

REPORT INFORMATION
  Report Type: 
  Country: None (occurrence: None)
  Receive Date: 20120131
  Receipt Date: 20120120
  Transmission Date: 20120608
  Serious: Yes (Hospitalization)
  Sender: FDA-Public Use
  Company Number: JP-BRISTOL-MYERS SQUIBB COMPANY-16367666

PATIENT
  Age: 70 Year
  Sex: Male

DRUGS (1)
  1. MAXIPIME [Suspect]
     Route: 041

REACTIONS (1)
  - TREMOR [None]
